FAERS Safety Report 15343689 (Version 1)
Quarter: 2018Q3

REPORT INFORMATION
  Report Type: Report from Study
  Country: JP (occurrence: JP)
  Receive Date: 20180903
  Receipt Date: 20180903
  Transmission Date: 20181010
  Serious: Yes (Hospitalization)
  Sender: FDA-Public Use
  Company Number: JP-TEVA-2018-JP-950640

PATIENT
  Age: 53 Year
  Sex: Female
  Weight: 65 kg

DRUGS (6)
  1. AZANIN [Concomitant]
     Active Substance: AZATHIOPRINE
     Route: 065
     Dates: start: 20171017
  2. BROTIZOLAM [Concomitant]
     Active Substance: BROTIZOLAM
     Route: 065
  3. PREDONINE [Concomitant]
     Active Substance: PREDNISOLONE
     Route: 065
     Dates: start: 20180818
  4. GLATIRAMER ACETATE. [Suspect]
     Active Substance: GLATIRAMER ACETATE
     Indication: RELAPSING-REMITTING MULTIPLE SCLEROSIS
     Dosage: 20 MILLIGRAM/MILLILITERS DAILY;
     Route: 058
     Dates: start: 20180705, end: 20180710
  5. LYRICA [Concomitant]
     Active Substance: PREGABALIN
     Route: 065
     Dates: start: 20170706
  6. PREDNISOLONE. [Concomitant]
     Active Substance: PREDNISOLONE
     Route: 065

REACTIONS (3)
  - Eye movement disorder [Recovering/Resolving]
  - Injection site pain [Recovering/Resolving]
  - Nausea [Recovered/Resolved]

NARRATIVE: CASE EVENT DATE: 20180705
